FAERS Safety Report 5179828-9 (Version None)
Quarter: 2006Q4

REPORT INFORMATION
  Report Type: 
  Country: None (occurrence: None)
  Receive Date: 20061219
  Receipt Date: 20061024
  Transmission Date: 20070319
  Serious: No
  Sender: FDA-Public Use
  Company Number: US-AMGEN-KDL198060

PATIENT
  Sex: Female

DRUGS (2)
  1. ENBREL [Suspect]
     Indication: RHEUMATOID ARTHRITIS
     Route: 058
     Dates: start: 20041019
  2. METHOTREXATE [Concomitant]
     Dates: start: 19970101

REACTIONS (4)
  - URINARY TRACT INFECTION [None]
  - VAGINAL CYST [None]
  - VAGINITIS BACTERIAL [None]
  - VULVOVAGINAL MYCOTIC INFECTION [None]
